FAERS Safety Report 4459099-9 (Version None)
Quarter: 2004Q3

REPORT INFORMATION
  Report Type: 
  Country: None (occurrence: None)
  Receive Date: 20040927
  Receipt Date: 20040917
  Transmission Date: 20050211
  Serious: No
  Sender: FDA-Public Use
  Company Number: US-JNJFOC-20040600818

PATIENT
  Age: 63 Year
  Sex: Male

DRUGS (6)
  1. DURAGESIC [Suspect]
     Route: 062
     Dates: start: 20040201
  2. DURAGESIC [Suspect]
     Route: 062
     Dates: start: 20040201
  3. DURAGESIC [Suspect]
     Route: 062
     Dates: start: 20040201
  4. DURAGESIC [Suspect]
     Dosage: (100 UG/HR PATCH AND 50 UG/HR PATCH TOGETHER)
     Route: 062
     Dates: start: 20040201
  5. METHADONE HCL [Concomitant]
  6. XANAX [Concomitant]

REACTIONS (4)
  - BACK PAIN [None]
  - INTENTIONAL MISUSE [None]
  - PHOTOPSIA [None]
  - THERAPEUTIC RESPONSE DECREASED [None]
